FAERS Safety Report 11372200 (Version 1)
Quarter: 2015Q3

REPORT INFORMATION
  Report Type: Spontaneous
  Country: US (occurrence: US)
  Receive Date: 20150811
  Receipt Date: 20150811
  Transmission Date: 20151125
  Serious: No
  Sender: FDA-Public Use
  Company Number: US-ELI_LILLY_AND_COMPANY-US201308005369

PATIENT
  Sex: Male

DRUGS (3)
  1. ZEMPLAR [Interacting]
     Active Substance: PARICALCITOL
     Indication: RENAL FAILURE
  2. AXIRON [Suspect]
     Active Substance: TESTOSTERONE
     Indication: BLOOD TESTOSTERONE DECREASED
     Dosage: 120 MG, EACH EVENING
     Dates: start: 20130812
  3. AXIRON [Interacting]
     Active Substance: TESTOSTERONE
     Dosage: 90 MG, QD

REACTIONS (5)
  - Drug interaction [Unknown]
  - Inappropriate schedule of drug administration [Recovered/Resolved]
  - Blood glucose decreased [Not Recovered/Not Resolved]
  - Glomerular filtration rate decreased [Unknown]
  - Fall [Unknown]
